FAERS Safety Report 25768590 (Version 2)
Quarter: 2025Q3

REPORT INFORMATION
  Report Type: Spontaneous
  Country: US (occurrence: US)
  Receive Date: 20250905
  Receipt Date: 20250911
  Transmission Date: 20251021
  Serious: No
  Sender: BIOGEN
  Company Number: US-BIOGEN-2023BI01228669

PATIENT
  Sex: Female

DRUGS (11)
  1. VUMERITY [Suspect]
     Active Substance: DIROXIMEL FUMARATE
     Indication: Multiple sclerosis
     Dosage: TAKE 2 CAPSULES (462MG) BY MOUTH TWICE DAILY
     Route: 050
     Dates: start: 20210929
  2. DIAZEPAM [Concomitant]
     Active Substance: DIAZEPAM
     Route: 050
  3. PAXIL [Concomitant]
     Active Substance: PAROXETINE HYDROCHLORIDE
     Route: 050
  4. AMLODIPINE BESYLATE [Concomitant]
     Active Substance: AMLODIPINE BESYLATE
     Route: 050
  5. BIOTIN [Concomitant]
     Active Substance: BIOTIN
     Route: 050
  6. VITAMIN C [Concomitant]
     Active Substance: ASCORBIC ACID
     Route: 050
  7. MELATONIN [Concomitant]
     Active Substance: MELATONIN
     Route: 050
  8. MORPHINE SULFATE [Concomitant]
     Active Substance: MORPHINE SULFATE
     Route: 050
  9. ASPIRIN [Concomitant]
     Active Substance: ASPIRIN
     Route: 050
  10. TIZANIDINE HYDROCHLORIDE [Concomitant]
     Active Substance: TIZANIDINE HYDROCHLORIDE
     Route: 050
  11. OXYCODONE HYDROCHLORIDE [Concomitant]
     Active Substance: OXYCODONE HYDROCHLORIDE
     Route: 050

REACTIONS (5)
  - Product dose omission issue [Unknown]
  - Secondary progressive multiple sclerosis [Unknown]
  - Flushing [Not Recovered/Not Resolved]
  - Pruritus [Unknown]
  - Rash [Unknown]
